FAERS Safety Report 8321705-6 (Version None)
Quarter: 2012Q2

REPORT INFORMATION
  Report Type: 
  Country: None (occurrence: None)
  Receive Date: 20120430
  Receipt Date: 20120424
  Transmission Date: 20120825
  Serious: Yes (Other)
  Sender: FDA-Public Use
  Company Number: US-PFIZER INC-2012101534

PATIENT
  Sex: Female
  Weight: 18.141 kg

DRUGS (2)
  1. ZITHROMAX [Suspect]
     Indication: BRONCHITIS
     Dosage: 200 MG, SINGLE
     Dates: start: 20120401, end: 20120401
  2. ZITHROMAX [Suspect]
     Indication: PNEUMONIA

REACTIONS (7)
  - RASH [None]
  - C-REACTIVE PROTEIN INCREASED [None]
  - URTICARIA [None]
  - RED BLOOD CELL SEDIMENTATION RATE INCREASED [None]
  - ABASIA [None]
  - ARTHRALGIA [None]
  - PYREXIA [None]
